FAERS Safety Report 14416598 (Version 4)
Quarter: 2019Q1

REPORT INFORMATION
  Report Type: Spontaneous
  Country: US (occurrence: US)
  Receive Date: 20180122
  Receipt Date: 20190319
  Transmission Date: 20190417
  Serious: Yes (Hospitalization)
  Sender: FDA-Public Use
  Company Number: US-B.I. PHARMACEUTICALS,INC./RIDGEFIELD-2018-BI-003662

PATIENT
  Age: 74 Year
  Sex: Female
  Weight: 84.5 kg

DRUGS (40)
  1. PERCOCET [Concomitant]
     Active Substance: ACETAMINOPHEN\OXYCODONE HYDROCHLORIDE
     Dosage: DOSE: 5-325 MG
     Route: 048
  2. LASIX [Concomitant]
     Active Substance: FUROSEMIDE
     Dosage: TAKE 1.5 TABLET
     Route: 048
     Dates: start: 20141016, end: 20151016
  3. PROVENTIL [Concomitant]
     Active Substance: ALBUTEROL
     Indication: DYSPNOEA
  4. LEVEMIR [Concomitant]
     Active Substance: INSULIN DETEMIR
     Indication: PRODUCT USED FOR UNKNOWN INDICATION
     Dosage: STRENGTH: 100 UNIT/ML
     Route: 058
     Dates: start: 20141016
  5. NYSTOP [Concomitant]
     Active Substance: NYSTATIN
     Indication: PRODUCT USED FOR UNKNOWN INDICATION
     Dosage: STRENGTH: 100000 UNIT/GM, FREQUENCY TEXT: APPLY 1 TO 2 TIMES DAILY UNDER BREASTS AND IN GROIN
     Route: 065
  6. COREG [Concomitant]
     Active Substance: CARVEDILOL
     Indication: PRODUCT USED FOR UNKNOWN INDICATION
     Route: 048
  7. PROTONIX [Concomitant]
     Active Substance: PANTOPRAZOLE SODIUM
     Indication: PRODUCT USED FOR UNKNOWN INDICATION
     Route: 048
     Dates: start: 20150223, end: 20160223
  8. PROTONIX [Concomitant]
     Active Substance: PANTOPRAZOLE SODIUM
     Route: 048
  9. ZOCOR [Concomitant]
     Active Substance: SIMVASTATIN
     Indication: BLOOD CHOLESTEROL ABNORMAL
  10. NORCO [Concomitant]
     Active Substance: ACETAMINOPHEN\HYDROCODONE BITARTRATE
     Indication: PRODUCT USED FOR UNKNOWN INDICATION
     Dosage: STRENGTH: 5-325 MG
     Route: 048
     Dates: start: 20141016
  11. STRESS B COMPLEX [Concomitant]
     Indication: PRODUCT USED FOR UNKNOWN INDICATION
     Dosage: DOSE: 500
     Route: 048
  12. ADVAIR HFA [Concomitant]
     Active Substance: FLUTICASONE PROPIONATE\SALMETEROL XINAFOATE
     Indication: PNEUMONITIS
     Dosage: FORM: AEPB INHALATION POWDER; DOSE: 500-50 MCG/DOSE; UNIT DOSE: 1 PUFF
     Route: 048
  13. AVAPRO [Concomitant]
     Active Substance: IRBESARTAN
     Indication: PROPHYLAXIS
  14. K-DUR [Concomitant]
     Active Substance: POTASSIUM CHLORIDE
     Indication: PRODUCT USED FOR UNKNOWN INDICATION
     Dosage: FORM: CR TABLET
     Route: 048
     Dates: start: 20141016, end: 20151016
  15. PERCOCET [Concomitant]
     Active Substance: ACETAMINOPHEN\OXYCODONE HYDROCHLORIDE
     Indication: PAIN
     Route: 042
  16. TIZANIDINE. [Concomitant]
     Active Substance: TIZANIDINE
     Indication: PRODUCT USED FOR UNKNOWN INDICATION
     Route: 065
  17. EFFEXOR [Concomitant]
     Active Substance: VENLAFAXINE HYDROCHLORIDE
     Indication: PRODUCT USED FOR UNKNOWN INDICATION
     Route: 048
  18. EFFEXOR [Concomitant]
     Active Substance: VENLAFAXINE HYDROCHLORIDE
     Route: 065
  19. PROVENTIL [Concomitant]
     Active Substance: ALBUTEROL
     Indication: WHEEZING
     Dosage: STRENGTH 2.5MG/0.5ML; STRENGTH: 2.5MG/3ML; UNIT DOSE: 3 MLS (2.5 MG TOTAL) TAKE 300 MG
     Route: 050
     Dates: start: 20141016
  20. COLACE [Concomitant]
     Active Substance: DOCUSATE SODIUM
     Indication: CONSTIPATION PROPHYLAXIS
     Route: 048
  21. NOVOLOG [Concomitant]
     Active Substance: INSULIN ASPART
     Indication: PRODUCT USED FOR UNKNOWN INDICATION
     Dosage: STR: 100UNIT/ML; IF SUGAR IS 201-250 INJECT 2U, 251-300: 4U, 301-350: 6 U, 351-400: 8U, 401-450:10U
     Route: 065
     Dates: start: 20141016, end: 20151016
  22. AVAPRO [Concomitant]
     Active Substance: IRBESARTAN
     Indication: HYPERTENSION
     Route: 048
  23. COMBIVENT [Concomitant]
     Active Substance: ALBUTEROL SULFATE\IPRATROPIUM BROMIDE
     Indication: DYSPNOEA
     Dosage: STRENGTH: 18-103 MCG/ACT; UNIT DOSE: 2 PUFFS IN LUNGS
  24. MAG-OX [Concomitant]
     Active Substance: MAGNESIUM OXIDE
     Route: 065
  25. ZAROXOLYN [Concomitant]
     Active Substance: METOLAZONE
     Route: 065
  26. ZOCOR [Concomitant]
     Active Substance: SIMVASTATIN
     Indication: CEREBROVASCULAR ACCIDENT PROPHYLAXIS
     Route: 048
  27. DURAGESIC [Concomitant]
     Active Substance: FENTANYL
     Indication: PRODUCT USED FOR UNKNOWN INDICATION
     Dosage: FORM: PATCH FREQUENCY TEXT: PLACE 1 PATCH ONTO THE SKIN EVERY THIRD DAY
     Route: 065
  28. PATANOL [Concomitant]
     Active Substance: OLOPATADINE HYDROCHLORIDE
     Indication: EYE PRURITUS
     Dosage: OPHTHALMIC SOLUTION?PLACE 1 DROP INTO BOTH EYES 2 (TWO) TIMES DAILY.
     Route: 065
  29. PRADAXA [Suspect]
     Active Substance: DABIGATRAN ETEXILATE MESYLATE
     Indication: ATRIAL FIBRILLATION
     Route: 048
     Dates: start: 20110829, end: 20150219
  30. MAG-OX [Concomitant]
     Active Substance: MAGNESIUM OXIDE
     Indication: PRODUCT USED FOR UNKNOWN INDICATION
     Route: 048
  31. ZAROXOLYN [Concomitant]
     Active Substance: METOLAZONE
     Indication: WEIGHT CONTROL
     Route: 048
     Dates: start: 20141016, end: 20151016
  32. LASIX [Concomitant]
     Active Substance: FUROSEMIDE
     Indication: HYPERTENSION
     Route: 048
  33. KLOR-CON [Concomitant]
     Active Substance: POTASSIUM CHLORIDE
     Indication: PRODUCT USED FOR UNKNOWN INDICATION
     Dosage: CONTROLLED-RELEASE TABLET
     Route: 048
  34. VITAMIN D3 [Concomitant]
     Active Substance: CHOLECALCIFEROL
     Indication: PRODUCT USED FOR UNKNOWN INDICATION
     Route: 048
  35. ZAROXOLYN [Concomitant]
     Active Substance: METOLAZONE
     Dosage: TAKE IT ONE HOUR BEFORE FUROSEMIDE EVERY 48 HOURS UNTIL WEIGHT IS BACK BETWEEN 160-165 POUNDS
     Route: 065
  36. COMBIVENT [Concomitant]
     Active Substance: ALBUTEROL SULFATE\IPRATROPIUM BROMIDE
     Indication: WHEEZING
  37. LASIX [Concomitant]
     Active Substance: FUROSEMIDE
     Indication: CARDIAC FAILURE
     Route: 048
  38. FERGON [Concomitant]
     Active Substance: FERROUS GLUCONATE
     Indication: IRON DEFICIENCY ANAEMIA
     Route: 048
  39. AVAPRO [Concomitant]
     Active Substance: IRBESARTAN
     Indication: CARDIAC FAILURE
     Dosage: 0.5 TABLET
     Route: 048
     Dates: start: 20141016, end: 20151110
  40. LEVOTHYROXINE. [Concomitant]
     Active Substance: LEVOTHYROXINE
     Indication: THYROID STIMULATING HORMONE DEFICIENCY
     Route: 048

REACTIONS (1)
  - Gastrointestinal haemorrhage [Recovered/Resolved]

NARRATIVE: CASE EVENT DATE: 20150219
